FAERS Safety Report 7094172-0 (Version None)
Quarter: 2010Q4

REPORT INFORMATION
  Report Type: 
  Country: None (occurrence: None)
  Receive Date: 20101110
  Receipt Date: 20101103
  Transmission Date: 20110411
  Serious: Yes (Life-Threatening)
  Sender: FDA-Public Use
  Company Number: US-MERCK-1011USA00626

PATIENT
  Age: 89 Year
  Sex: Female

DRUGS (3)
  1. FOSAMAX [Suspect]
     Indication: OSTEOPOROSIS
     Route: 048
  2. AGGRENOX [Concomitant]
     Indication: THROMBOSIS
     Route: 065
  3. AGGRENOX [Concomitant]
     Indication: DEEP VEIN THROMBOSIS
     Route: 065

REACTIONS (1)
  - HAEMORRHAGE [None]
